FAERS Safety Report 6182632-6 (Version None)
Quarter: 2009Q2

REPORT INFORMATION
  Report Type: 
  Country: None (occurrence: None)
  Receive Date: 20090505
  Receipt Date: 20090421
  Transmission Date: 20091009
  Serious: Yes (Death, Hospitalization)
  Sender: FDA-Public Use
  Company Number: CFNT-327

PATIENT
  Age: 38 Year
  Sex: Male

DRUGS (11)
  1. MEIACT MS TABLET (CEFDITOREN PIVOXIL) [Suspect]
     Indication: NASOPHARYNGITIS
     Dosage: 300MG ORAL
     Route: 048
     Dates: start: 20090107, end: 20090108
  2. SULPYRINE (SULPYRINE HYDRATE) [Suspect]
     Indication: NASOPHARYNGITIS
     Dosage: 0.8 G P.O.
     Route: 048
     Dates: start: 20090107, end: 20090108
  3. CEFOCEF (CEFOPERAZONE SODIUM/SULBACTAM SODIUM) [Suspect]
     Indication: GASTROENTERITIS
     Dosage: 1 G D.I.V.
     Route: 042
     Dates: start: 20090109, end: 20090109
  4. RELENZA [Suspect]
     Indication: INFLUENZA
     Dosage: I.H.
     Route: 055
     Dates: start: 20090108, end: 20090109
  5. L-CARBOCISTEINE [Concomitant]
  6. PRONASE [Concomitant]
  7. DIPHENYLPYRALINE CHLOROTHEOPHYLLINATE [Concomitant]
  8. BIFIDOBACTERIUM [Concomitant]
  9. DEQUALINUM CHLORIDE [Concomitant]
  10. SODIUM GUALENATE HYDRATE [Concomitant]
  11. CHLORPHENIRAMINE MALEATE [Concomitant]

REACTIONS (9)
  - ANOREXIA [None]
  - BRAIN HERNIATION [None]
  - BRAIN OEDEMA [None]
  - CEREBRAL ISCHAEMIA [None]
  - CONTINUOUS HAEMODIAFILTRATION [None]
  - CONVULSION [None]
  - GASTROENTERITIS [None]
  - HEPATIC ENCEPHALOPATHY [None]
  - HEPATITIS FULMINANT [None]
